FAERS Safety Report 7484762-5 (Version None)
Quarter: 2011Q2

REPORT INFORMATION
  Report Type: 
  Country: None (occurrence: None)
  Receive Date: 20110517
  Receipt Date: 20110504
  Transmission Date: 20111010
  Serious: Yes (Life-Threatening, Other)
  Sender: FDA-Public Use
  Company Number: FR-ROCHE-737879

PATIENT
  Sex: Female

DRUGS (6)
  1. TRASTUZUMAB [Suspect]
     Route: 042
     Dates: start: 20091001
  2. TRASTUZUMAB [Suspect]
     Route: 042
     Dates: end: 20101004
  3. LAPATINIB [Suspect]
     Indication: BREAST CANCER
     Route: 048
     Dates: start: 20091001
  4. TRASTUZUMAB [Suspect]
     Indication: BREAST CANCER
     Dosage: LOADING DOSE
     Route: 042
  5. LAPATINIB [Suspect]
     Route: 048
     Dates: end: 20101007
  6. DOCETAXEL [Suspect]
     Indication: BREAST CANCER
     Route: 042
     Dates: start: 20091001, end: 20091204

REACTIONS (2)
  - MONOCLONAL GAMMOPATHY [None]
  - MULTIPLE MYELOMA [None]
